FAERS Safety Report 8796798 (Version 5)
Quarter: 2012Q4

REPORT INFORMATION
  Report Type: 
  Country: US (occurrence: US)
  Receive Date: 20120919
  Receipt Date: 20121219
  Transmission Date: 20130627
  Serious: Yes (Hospitalization, Disabling, Other)
  Sender: FDA-Public Use
  Company Number: US-009507513-1201USA00241

PATIENT

DRUGS (7)
  1. FOSAMAX [Suspect]
     Indication: OSTEOPOROSIS
     Dosage: 70 mg, qw
     Route: 048
     Dates: start: 2004, end: 2010
  2. FOSAMAX [Suspect]
     Indication: OSTEOPOROSIS
     Dosage: 70 mg, qw
     Route: 048
     Dates: start: 2010
  3. VITAMINS (UNSPECIFIED) [Concomitant]
  4. CALCIUM (UNSPECIFIED) (+) VITAMIN D (UNSPECIFIED) [Concomitant]
  5. ASCORBIC ACID [Concomitant]
  6. TRAZODONE HYDROCHLORIDE [Concomitant]
     Indication: INSOMNIA
     Dosage: UNK
     Dates: start: 2008, end: 2012
  7. K-DUR [Concomitant]
     Indication: MINERAL SUPPLEMENTATION
     Dosage: UNK
     Dates: start: 2002

REACTIONS (41)
  - Femur fracture [Unknown]
  - Limb operation [Unknown]
  - Humerus fracture [Not Recovered/Not Resolved]
  - Neoplasm malignant [Unknown]
  - Hair transplant [Unknown]
  - Scar excision [Unknown]
  - Periprosthetic fracture [Recovering/Resolving]
  - Intramedullary rod insertion [Unknown]
  - Open reduction of fracture [Unknown]
  - Bone graft [Unknown]
  - Radial nerve palsy [Unknown]
  - Surgery [Unknown]
  - Shoulder arthroplasty [Unknown]
  - Muscle strain [Unknown]
  - Upper limb fracture [Unknown]
  - Impaired healing [Unknown]
  - Impaired healing [Unknown]
  - Depression [Unknown]
  - Mobility decreased [Unknown]
  - Fall [Unknown]
  - Pulmonary mass [Recovered/Resolved]
  - Anorexia nervosa [Unknown]
  - Abscess limb [Unknown]
  - Abscess drainage [Unknown]
  - Scar [Unknown]
  - Incisional drainage [Unknown]
  - Skin disorder [Unknown]
  - Device failure [Unknown]
  - Malnutrition [Unknown]
  - Cellulitis [Unknown]
  - Bone density decreased [Unknown]
  - Bone deformity [Unknown]
  - Rib fracture [Unknown]
  - Osteoarthritis [Unknown]
  - Bone deformity [Unknown]
  - Pubis fracture [Unknown]
  - Device failure [Unknown]
  - Rib fracture [Unknown]
  - Rib fracture [Unknown]
  - Osteoarthritis [Unknown]
  - Alopecia [Unknown]
